FAERS Safety Report 16569506 (Version 1)
Quarter: 2019Q3

REPORT INFORMATION
  Report Type: Spontaneous
  Country: US (occurrence: US)
  Receive Date: 20190715
  Receipt Date: 20190715
  Transmission Date: 20191004
  Serious: Yes (Other)
  Sender: FDA-Public Use
  Company Number: US-TEVA-2018-US-950317

PATIENT
  Age: 14 Year
  Sex: Female

DRUGS (3)
  1. RISPERIDONE. [Suspect]
     Active Substance: RISPERIDONE
     Indication: BIPOLAR DISORDER
     Route: 065
  2. LITHIUM. [Concomitant]
     Active Substance: LITHIUM
     Indication: BIPOLAR DISORDER
  3. LITHIUM. [Concomitant]
     Active Substance: LITHIUM
     Indication: AUTISM SPECTRUM DISORDER
     Route: 065

REACTIONS (2)
  - Neuroleptic malignant syndrome [Unknown]
  - Acute kidney injury [Unknown]
